FAERS Safety Report 5590851-2 (Version None)
Quarter: 2008Q1

REPORT INFORMATION
  Report Type: 
  Country: None (occurrence: None)
  Receive Date: 20080110
  Receipt Date: 20071225
  Transmission Date: 20080703
  Serious: Yes (Other)
  Sender: FDA-Public Use
  Company Number: 2007JP005459

PATIENT
  Age: 62 Year
  Sex: Female
  Weight: 52.7 kg

DRUGS (8)
  1. PROGRAF [Suspect]
     Indication: MYASTHENIA GRAVIS
     Dosage: 3 MG, UID/QD, ORAL
     Route: 048
     Dates: start: 20071121, end: 20071128
  2. MAGNESIUM OXIDE (MAGNESIUM OXIDE) POWDER [Concomitant]
  3. VASOLAN (VERAPAMIL HYDROCHLORIDE) TABLET [Concomitant]
  4. SCOPOLIA EXTRACT (SCOPOLIA CARNIOLICA EXTRACT) POWDER [Concomitant]
  5. MESTINON [Concomitant]
  6. SANMOL SOLUTION [Concomitant]
  7. AMARYL [Concomitant]
  8. LANSOPRAZOLE [Concomitant]

REACTIONS (3)
  - CARDIAC FAILURE [None]
  - HAEMOTHORAX [None]
  - WEIGHT INCREASED [None]
